FAERS Safety Report 8321509-4 (Version None)
Quarter: 2012Q2

REPORT INFORMATION
  Report Type: 
  Country: None (occurrence: None)
  Receive Date: 20120430
  Receipt Date: 20120430
  Transmission Date: 20120825
  Serious: Yes (Other)
  Sender: FDA-Public Use
  Company Number: None

PATIENT
  Age: 32 Year
  Sex: Female
  Weight: 102.05 kg

DRUGS (1)
  1. CYMBALTA [Suspect]
     Indication: DEPRESSION
     Dosage: 60 MG'S
     Route: 048
     Dates: start: 20101229, end: 20120424

REACTIONS (3)
  - AGITATION [None]
  - ANXIETY [None]
  - SOMNOLENCE [None]
